FAERS Safety Report 7658578-0 (Version None)
Quarter: 2011Q3

REPORT INFORMATION
  Report Type: 
  Country: None (occurrence: None)
  Receive Date: 20110802
  Receipt Date: 20110718
  Transmission Date: 20111222
  Serious: Yes (Hospitalization)
  Sender: FDA-Public Use
  Company Number: GLIP20110003

PATIENT
  Age: 20 Month
  Sex: Female

DRUGS (1)
  1. GLIPIZIDE [Suspect]
     Indication: ACCIDENTAL EXPOSURE
     Dosage: ORAL
     Route: 048

REACTIONS (3)
  - CONVULSION [None]
  - ACCIDENTAL EXPOSURE [None]
  - HYPOGLYCAEMIA [None]
